FAERS Safety Report 6893499-2 (Version None)
Quarter: 2010Q3

REPORT INFORMATION
  Report Type: 
  Country: None (occurrence: None)
  Receive Date: 20100731
  Receipt Date: 20090925
  Transmission Date: 20110219
  Serious: No
  Sender: FDA-Public Use
  Company Number: US-PFIZER INC-2009264080

PATIENT
  Sex: Female
  Weight: 75.7 kg

DRUGS (3)
  1. LIPITOR [Suspect]
     Indication: HYPERTENSION
     Dosage: 5 MG, 1X/DAY
     Route: 048
     Dates: start: 20090501, end: 20090831
  2. LIPITOR [Suspect]
     Indication: HYPERLIPIDAEMIA
  3. VITAMIN B-12 [Concomitant]

REACTIONS (1)
  - ALOPECIA [None]
